FAERS Safety Report 12613914 (Version 3)
Quarter: 2016Q3

REPORT INFORMATION
  Report Type: Spontaneous
  Country: US (occurrence: US)
  Receive Date: 20160802
  Receipt Date: 20160927
  Transmission Date: 20161109
  Serious: Yes (Other)
  Sender: FDA-Public Use
  Company Number: US-PFIZER INC-2016344017

PATIENT
  Age: 81 Year
  Sex: Female

DRUGS (1)
  1. GABAPENTIN. [Suspect]
     Active Substance: GABAPENTIN
     Indication: EXOSTOSIS
     Dosage: 300 MG, 3X/DAY
     Dates: start: 20160415, end: 201606

REACTIONS (4)
  - Product use issue [Unknown]
  - Condition aggravated [Unknown]
  - Renal disorder [Recovered/Resolved]
  - Anuria [Unknown]

NARRATIVE: CASE EVENT DATE: 20160415
